FAERS Safety Report 5896360-5 (Version None)
Quarter: 2008Q3

REPORT INFORMATION
  Report Type: 
  Country: None (occurrence: None)
  Receive Date: 20080924
  Receipt Date: 20070926
  Transmission Date: 20090109
  Serious: Yes (Hospitalization)
  Sender: FDA-Public Use
  Company Number: US-ASTRAZENECA-2007UW22485

PATIENT
  Age: 78 Year
  Sex: Male

DRUGS (8)
  1. SEROQUEL [Suspect]
     Route: 048
     Dates: end: 20070914
  2. ARICEPT [Interacting]
     Indication: DEMENTIA
     Route: 048
     Dates: end: 20070911
  3. ARICEPT [Interacting]
     Route: 048
     Dates: start: 20070912
  4. SINEMET [Concomitant]
     Route: 048
     Dates: start: 20061025
  5. TOLCAPONE [Concomitant]
     Route: 048
  6. COUMADIN [Concomitant]
  7. IMDUR [Concomitant]
     Route: 048
  8. ZOLOFT [Concomitant]
     Route: 048

REACTIONS (2)
  - DRUG INTERACTION [None]
  - SYNCOPE [None]
